FAERS Safety Report 9575720 (Version 1)
Quarter: 2013Q4

REPORT INFORMATION
  Report Type: Spontaneous
  Country: US (occurrence: US)
  Receive Date: 20131001
  Receipt Date: 20131001
  Transmission Date: 20140711
  Serious: No
  Sender: FDA-Public Use
  Company Number: US-AMGEN-USASP2012035893

PATIENT
  Age: 70 Year
  Sex: Female
  Weight: 72.11 kg

DRUGS (11)
  1. PROCRIT [Suspect]
     Indication: ANAEMIA
     Dosage: 20000 IU, QMO
     Route: 058
     Dates: start: 2005, end: 201205
  2. PROCRIT [Suspect]
     Dosage: 20000 IU, Q2WK
     Dates: start: 201205, end: 201206
  3. METOPROLOL [Suspect]
     Indication: CARDIAC DISORDER
     Dosage: UNK
     Route: 048
     Dates: start: 2004, end: 2009
  4. CELLCEPT                           /01275102/ [Concomitant]
     Indication: RENAL DISORDER
     Dosage: UNK UNK, BID
     Route: 048
     Dates: start: 2004
  5. DILANTIN                           /00017401/ [Concomitant]
     Indication: CONVULSION
     Dosage: 100 MG, TID
     Route: 048
     Dates: start: 2005
  6. BABY ASPIRIN [Concomitant]
     Indication: PROPHYLAXIS
     Dosage: 81 MG, BID
     Route: 048
     Dates: start: 2004
  7. CLONIDINE [Concomitant]
     Dosage: UNK UNK, QID
     Dates: start: 2009
  8. IRON [Concomitant]
     Dosage: 1.25 MG, QWK
     Route: 048
     Dates: start: 2009
  9. FOLIC ACID [Concomitant]
     Dosage: 1 MG, BID
     Route: 048
     Dates: start: 2005
  10. NORVASC [Concomitant]
     Indication: CARDIAC DISORDER
     Dosage: 10 MG, QD
     Route: 048
     Dates: start: 2005
  11. METOPROLOL [Concomitant]
     Indication: CARDIAC DISORDER
     Dosage: UNK
     Route: 048
     Dates: start: 2004, end: 2009

REACTIONS (2)
  - Wheezing [Recovered/Resolved]
  - Haemoglobin decreased [Not Recovered/Not Resolved]
